FAERS Safety Report 15483585 (Version 1)
Quarter: 2018Q4

REPORT INFORMATION
  Report Type: Spontaneous
  Country: US (occurrence: US)
  Receive Date: 20181010
  Receipt Date: 20181010
  Transmission Date: 20190205
  Serious: No
  Sender: FDA-Public Use
  Company Number: US-BAYER-2018-188683

PATIENT
  Age: 66 Year
  Sex: Male

DRUGS (1)
  1. BETASERON [Suspect]
     Active Substance: INTERFERON BETA-1B
     Indication: MULTIPLE SCLEROSIS
     Dosage: 0.3 MG, UNK

REACTIONS (7)
  - Arthralgia [None]
  - Gout [None]
  - Depression [None]
  - Nasopharyngitis [None]
  - Cough [None]
  - Somnolence [None]
  - Incontinence [None]
